FAERS Safety Report 17483583 (Version 1)
Quarter: 2020Q1

REPORT INFORMATION
  Report Type: Spontaneous
  Country: US (occurrence: US)
  Receive Date: 20200218
  Receipt Date: 20200218
  Transmission Date: 20200409
  Serious: Yes (Life-Threatening, Hospitalization, Other)
  Sender: FDA-Public Use
  Company Number: None

PATIENT
  Age: 54 Year
  Sex: Male

DRUGS (1)
  1. PREDNISONE (PREDNISONE 20MG TAB) [Suspect]
     Active Substance: PREDNISONE
     Indication: PAIN
     Dates: start: 20191226, end: 20200102

REACTIONS (3)
  - Back injury [None]
  - Suicidal ideation [None]
  - Hallucination, auditory [None]

NARRATIVE: CASE EVENT DATE: 20200102
